FAERS Safety Report 4666933-6 (Version None)
Quarter: 2005Q2

REPORT INFORMATION
  Report Type: 
  Country: None (occurrence: None)
  Receive Date: 20050518
  Receipt Date: 20040729
  Transmission Date: 20051028
  Serious: Yes (Other)
  Sender: FDA-Public Use
  Company Number: 2004225758US

PATIENT
  Sex: Female

DRUGS (1)
  1. DEPO-PROVERA [Suspect]
     Indication: CONTRACEPTION
     Dosage: 150 MG, FIRST INJECTION, INTRAMUSCULAR
     Route: 030
     Dates: start: 19660729, end: 19960729

REACTIONS (1)
  - OSTEOPENIA [None]
